FAERS Safety Report 8684033 (Version 3)
Quarter: 2013Q2

REPORT INFORMATION
  Report Type: Report from Study
  Country: JP (occurrence: JP)
  Receive Date: 20120726
  Receipt Date: 20130408
  Transmission Date: 20140414
  Serious: Yes (Other)
  Sender: FDA-Public Use
  Company Number: JP-009507513-1207JPN008153

PATIENT
  Age: 54 Year
  Sex: Male
  Weight: 62 kg

DRUGS (6)
  1. PEGINTRON [Suspect]
     Indication: CHRONIC HEPATITIS C
     Dosage: 100 MICROGRAM, QW
     Route: 058
     Dates: start: 20120704
  2. REBETOL [Suspect]
     Indication: CHRONIC HEPATITIS C
     Dosage: 600 MG, QD
     Route: 048
     Dates: start: 20120704
  3. TELAVIC [Suspect]
     Indication: CHRONIC HEPATITIS C
     Dosage: 2250 MG, QD
     Route: 048
     Dates: start: 20120704, end: 20120706
  4. VOLTAREN SR [Suspect]
     Indication: ADVERSE EVENT
     Dosage: 37.5 MG, QD
     Route: 048
     Dates: start: 20120704
  5. METFORMIN HYDROCHLORIDE [Concomitant]
     Indication: DIABETES MELLITUS
     Dosage: 500 MG, QD, FORMULATION: POR
  6. NOVORAPID [Concomitant]
     Indication: DIABETES MELLITUS
     Dosage: 36 UNITS
     Route: 042

REACTIONS (12)
  - Erythema [Recovered/Resolved]
  - Renal disorder [Not Recovered/Not Resolved]
  - Nausea [None]
  - Decreased appetite [None]
  - Pyrexia [None]
  - Rash [None]
  - Drug eruption [None]
  - Pruritus [None]
  - Blood creatinine increased [None]
  - Blood uric acid increased [None]
  - Blood urea increased [None]
  - Dehydration [None]
